FAERS Safety Report 25613766 (Version 1)
Quarter: 2025Q3

REPORT INFORMATION
  Report Type: Spontaneous
  Country: US (occurrence: US)
  Receive Date: 20250728
  Receipt Date: 20250728
  Transmission Date: 20251021
  Serious: No
  Sender: MYLAN
  Company Number: US-MYLANLABS-2025M1061838

PATIENT
  Age: 57 Year
  Sex: Male

DRUGS (8)
  1. LOPERAMIDE [Suspect]
     Active Substance: LOPERAMIDE
     Indication: Diarrhoea
  2. LOPERAMIDE [Suspect]
     Active Substance: LOPERAMIDE
     Route: 065
  3. LOPERAMIDE [Suspect]
     Active Substance: LOPERAMIDE
     Route: 065
  4. LOPERAMIDE [Suspect]
     Active Substance: LOPERAMIDE
  5. LENVIMA [Concomitant]
     Active Substance: LENVATINIB
     Dosage: 14 MILLIGRAM, QD (ONCE DAILY)
  6. LENVIMA [Concomitant]
     Active Substance: LENVATINIB
     Dosage: 14 MILLIGRAM, QD (ONCE DAILY)
     Route: 048
  7. LENVIMA [Concomitant]
     Active Substance: LENVATINIB
     Dosage: 14 MILLIGRAM, QD (ONCE DAILY)
     Route: 048
  8. LENVIMA [Concomitant]
     Active Substance: LENVATINIB
     Dosage: 14 MILLIGRAM, QD (ONCE DAILY)

REACTIONS (2)
  - Fatigue [Unknown]
  - Drug ineffective [Unknown]
